FAERS Safety Report 26002026 (Version 1)
Quarter: 2025Q4

REPORT INFORMATION
  Report Type: Spontaneous
  Country: US (occurrence: US)
  Receive Date: 20251105
  Receipt Date: 20251105
  Transmission Date: 20260118
  Serious: Yes (Other)
  Sender: NOVO NORDISK
  Company Number: US-NOVOPROD-1554031

PATIENT
  Sex: Female

DRUGS (1)
  1. WEGOVY [Suspect]
     Active Substance: SEMAGLUTIDE
     Indication: Weight control
     Dosage: 0.25 MG, QW
     Route: 058
     Dates: start: 202510

REACTIONS (10)
  - Diabetes mellitus [Unknown]
  - Thyroid disorder [Unknown]
  - Condition aggravated [Unknown]
  - Fall [Recovering/Resolving]
  - Tendon injury [Recovering/Resolving]
  - Wound [Unknown]
  - Contusion [Unknown]
  - Joint injury [Unknown]
  - Skin laceration [Recovering/Resolving]
  - Fatigue [Unknown]

NARRATIVE: CASE EVENT DATE: 20251018
